FAERS Safety Report 5695172-5 (Version None)
Quarter: 2008Q2

REPORT INFORMATION
  Report Type: 
  Country: None (occurrence: None)
  Receive Date: 20080404
  Receipt Date: 20080326
  Transmission Date: 20081010
  Serious: Yes (Hospitalization)
  Sender: FDA-Public Use
  Company Number: US-ABBOTT-08P-163-0444188-00

PATIENT
  Sex: Female
  Weight: 53.572 kg

DRUGS (1)
  1. HUMIRA [Suspect]
     Indication: CROHN'S DISEASE
     Route: 058
     Dates: start: 20080101, end: 20080227

REACTIONS (4)
  - ABDOMINAL PAIN UPPER [None]
  - HEPATIC LESION [None]
  - PALPATORY FINDING ABNORMAL [None]
  - RECTAL ABSCESS [None]
